FAERS Safety Report 7015949-3 (Version None)
Quarter: 2010Q3

REPORT INFORMATION
  Report Type: 
  Country: None (occurrence: None)
  Receive Date: 20100927
  Receipt Date: 20091026
  Transmission Date: 20110219
  Serious: No
  Sender: FDA-Public Use
  Company Number: US-ASTRAZENECA-2009SE22594

PATIENT
  Age: 76 Year
  Sex: Female
  Weight: 59 kg

DRUGS (10)
  1. ARIMIDEX [Suspect]
     Indication: BREAST CANCER
     Route: 048
     Dates: start: 20060101
  2. NEURONTIN [Concomitant]
  3. PLAVIX [Concomitant]
  4. DARVOCET [Concomitant]
  5. XANAX [Concomitant]
  6. LEVOTHYROXINE SODIUM [Concomitant]
  7. CELEXA [Concomitant]
  8. LOVASTATIN [Concomitant]
  9. LISINOPRIL [Concomitant]
  10. ASPIRIN [Concomitant]

REACTIONS (2)
  - BURNING SENSATION [None]
  - WEIGHT INCREASED [None]
